FAERS Safety Report 4399023-0 (Version None)
Quarter: 2004Q3

REPORT INFORMATION
  Report Type: 
  Country: None (occurrence: None)
  Receive Date: 20040715
  Receipt Date: 20040705
  Transmission Date: 20050211
  Serious: Yes (Life-Threatening, Hospitalization)
  Sender: FDA-Public Use
  Company Number: FI-MERCK-0407FIN00005

PATIENT
  Age: 57 Year
  Sex: Male

DRUGS (3)
  1. ASPIRIN [Concomitant]
     Indication: PROPHYLAXIS
     Route: 048
     Dates: start: 20010601
  2. BISOPROLOL FUMARATE [Concomitant]
     Indication: HYPERTENSION
     Route: 048
     Dates: start: 20010612
  3. PRINZIDE [Suspect]
     Indication: HYPERTENSION
     Route: 048
     Dates: start: 20010602, end: 20010616

REACTIONS (4)
  - LARYNGEAL OEDEMA [None]
  - LOCAL SWELLING [None]
  - SWELLING FACE [None]
  - SWOLLEN TONGUE [None]
